FAERS Safety Report 15019346 (Version 5)
Quarter: 2018Q3

REPORT INFORMATION
  Report Type: Report from Study
  Country: PA (occurrence: PA)
  Receive Date: 20180617
  Receipt Date: 20180914
  Transmission Date: 20181010
  Serious: Yes (Other)
  Sender: FDA-Public Use
  Company Number: PHHY2017PA090785

PATIENT
  Sex: Female
  Weight: 46.72 kg

DRUGS (2)
  1. AFINITOR [Suspect]
     Active Substance: EVEROLIMUS
     Indication: RENAL CELL CARCINOMA
     Dosage: 10 MG, QD
     Route: 065
     Dates: start: 201706, end: 20170922
  2. LISINOPRIL. [Suspect]
     Active Substance: LISINOPRIL
     Indication: HYPERTENSION
     Dosage: 1 DF, QD
     Route: 065

REACTIONS (54)
  - Renal cell carcinoma [Unknown]
  - Dizziness [Unknown]
  - Dyspnoea [Unknown]
  - Peripheral swelling [Unknown]
  - Abdominal pain [Unknown]
  - Wrong technique in product usage process [Unknown]
  - Ear pain [Unknown]
  - Pain in jaw [Unknown]
  - Gingival disorder [Unknown]
  - Tooth disorder [Unknown]
  - Reflux gastritis [Unknown]
  - Stomatitis [Recovered/Resolved]
  - Headache [Unknown]
  - Mastication disorder [Unknown]
  - Pain in extremity [Unknown]
  - Gingival recession [Unknown]
  - Acne [Unknown]
  - Nausea [Unknown]
  - Pancreatic carcinoma metastatic [Unknown]
  - Malignant neoplasm progression [Unknown]
  - Discomfort [Unknown]
  - Lip dry [Unknown]
  - Feeling abnormal [Unknown]
  - Somnolence [Unknown]
  - Oral discomfort [Unknown]
  - Pain [Unknown]
  - Anxiety [Unknown]
  - Gingival ulceration [Recovered/Resolved]
  - Abdominal discomfort [Unknown]
  - General physical health deterioration [Unknown]
  - Platelet count decreased [Unknown]
  - Constipation [Unknown]
  - Asthenia [Unknown]
  - Pyrexia [Recovering/Resolving]
  - Arthralgia [Unknown]
  - Malaise [Recovering/Resolving]
  - Drug intolerance [Unknown]
  - Tremor [Unknown]
  - Productive cough [Unknown]
  - Dyspepsia [Unknown]
  - Rash [Recovered/Resolved]
  - Nasopharyngitis [Unknown]
  - Back pain [Unknown]
  - Urticaria [Unknown]
  - Joint swelling [Unknown]
  - Hypophagia [Recovering/Resolving]
  - Chapped lips [Unknown]
  - Chest pain [Unknown]
  - Burning sensation [Unknown]
  - Fatigue [Unknown]
  - Weight decreased [Unknown]
  - Decreased appetite [Unknown]
  - Rash [Unknown]
  - Cough [Recovering/Resolving]
